FAERS Safety Report 12919665 (Version 2)
Quarter: 2016Q4

REPORT INFORMATION
  Report Type: Spontaneous
  Country: US (occurrence: US)
  Receive Date: 20161107
  Receipt Date: 20161205
  Transmission Date: 20170207
  Serious: No
  Sender: FDA-Public Use
  Company Number: US-PFIZER INC-2016516650

PATIENT
  Age: 56 Year
  Sex: Female

DRUGS (1)
  1. ESTRING [Suspect]
     Active Substance: ESTRADIOL
     Indication: ATROPHIC VULVOVAGINITIS
     Dosage: 2 MG, UNK (2 MG RING 1 EVERY 3 MONTHS)

REACTIONS (2)
  - Flashback [Not Recovered/Not Resolved]
  - Condition aggravated [Not Recovered/Not Resolved]
